FAERS Safety Report 5770242-1 (Version None)
Quarter: 2008Q2

REPORT INFORMATION
  Report Type: 
  Country: None (occurrence: None)
  Receive Date: 20080613
  Receipt Date: 20080507
  Transmission Date: 20081010
  Serious: No
  Sender: FDA-Public Use
  Company Number: US-ABBOTT-08P-163-0449624-00

PATIENT
  Sex: Female
  Weight: 72.64 kg

DRUGS (4)
  1. HUMIRA [Suspect]
     Indication: CROHN'S DISEASE
     Route: 058
     Dates: start: 20070101
  2. MYCOPHENOLATE MOFETIL [Concomitant]
     Indication: SKIN ULCER
     Route: 048
     Dates: start: 20070101
  3. MYCOPHENOLATE MOFETIL [Concomitant]
     Indication: PYODERMA GANGRENOSUM
  4. PREDNISONE TAB [Concomitant]
     Indication: CROHN'S DISEASE
     Route: 048

REACTIONS (2)
  - SKIN ULCER [None]
  - URINARY TRACT INFECTION [None]
